FAERS Safety Report 8473490-5 (Version None)
Quarter: 2012Q2

REPORT INFORMATION
  Report Type: 
  Country: None (occurrence: None)
  Receive Date: 20120622
  Receipt Date: 20120622
  Transmission Date: 20120825
  Serious: Yes (Hospitalization)
  Sender: FDA-Public Use
  Company Number: None

PATIENT
  Sex: Female
  Weight: 108 kg

DRUGS (8)
  1. PHENOL [Concomitant]
  2. ALLANTOIN/CAMPHOR/PHENOL [Concomitant]
  3. HEPARIN [Concomitant]
  4. ACETAMINOPHEN [Concomitant]
  5. ETHINYL ESTRADIOL/NORGESTIN [Suspect]
     Dates: start: 20120301, end: 20120621
  6. SODIUM CHLORIDE [Concomitant]
  7. HYDORMORPHINE [Concomitant]
  8. NACL WITH KCL [Concomitant]

REACTIONS (9)
  - NAUSEA [None]
  - DIZZINESS [None]
  - OEDEMA PERIPHERAL [None]
  - FATIGUE [None]
  - VOMITING [None]
  - VASCULAR COMPRESSION [None]
  - VENOUS THROMBOSIS [None]
  - PAIN IN EXTREMITY [None]
  - HYPOAESTHESIA [None]
